FAERS Safety Report 20901751 (Version 1)
Quarter: 2022Q2

REPORT INFORMATION
  Report Type: Spontaneous
  Country: US (occurrence: US)
  Receive Date: 20220601
  Receipt Date: 20220601
  Transmission Date: 20220721
  Serious: No
  Sender: FDA-Public Use
  Company Number: US-ABBVIE-22K-163-4361634-00

PATIENT
  Sex: Female

DRUGS (6)
  1. ORIAHNN [Suspect]
     Active Substance: ELAGOLIX SODIUM\ESTRADIOL\NORETHINDRONE
     Indication: Heavy menstrual bleeding
     Route: 048
  2. ORIAHNN [Suspect]
     Active Substance: ELAGOLIX SODIUM\ESTRADIOL\NORETHINDRONE
     Indication: Uterine leiomyoma
  3. ORIAHNN [Suspect]
     Active Substance: ELAGOLIX SODIUM\ESTRADIOL\NORETHINDRONE
     Indication: Heavy menstrual bleeding
     Route: 048
  4. ORIAHNN [Suspect]
     Active Substance: ELAGOLIX SODIUM\ESTRADIOL\NORETHINDRONE
     Indication: Uterine leiomyoma
  5. ORILISSA [Suspect]
     Active Substance: ELAGOLIX SODIUM
     Indication: Heavy menstrual bleeding
     Route: 048
  6. ORILISSA [Suspect]
     Active Substance: ELAGOLIX SODIUM
     Indication: Uterine leiomyoma

REACTIONS (1)
  - Uterine leiomyoma [Unknown]
